FAERS Safety Report 16076508 (Version 1)
Quarter: 2019Q1

REPORT INFORMATION
  Report Type: Spontaneous
  Country: CA (occurrence: CA)
  Receive Date: 20190315
  Receipt Date: 20190315
  Transmission Date: 20190418
  Serious: Yes (Other)
  Sender: FDA-Public Use
  Company Number: CA-AUROBINDO-AUR-APL-2019-013732

PATIENT

DRUGS (2)
  1. METFORMIN TABLET [Suspect]
     Active Substance: METFORMIN HYDROCHLORIDE
     Indication: DIABETES MELLITUS MANAGEMENT
     Dosage: 500.0 MILLIGRAM
     Route: 048
  2. OLMESARTAN [Suspect]
     Active Substance: OLMESARTAN
     Indication: NEPHROPATHY
     Dosage: 20.0 MILLIGRAM
     Route: 048

REACTIONS (2)
  - Dyspepsia [Recovered/Resolved]
  - Abdominal distension [Recovered/Resolved]
